FAERS Safety Report 7876841-5 (Version None)
Quarter: 2011Q4

REPORT INFORMATION
  Report Type: 
  Country: None (occurrence: None)
  Receive Date: 20111031
  Receipt Date: 20111018
  Transmission Date: 20120403
  Serious: Yes (Other)
  Sender: FDA-Public Use
  Company Number: PHHY2011US95489

PATIENT

DRUGS (3)
  1. IMATINIB MESYLATE [Suspect]
     Dosage: 600 MG, PER DAY
  2. IMATINIB MESYLATE [Suspect]
     Indication: INTERSTITIAL LUNG DISEASE
     Dosage: 100 MG, PER DAY
  3. PREDNISONE [Concomitant]

REACTIONS (1)
  - CD4 LYMPHOCYTES INCREASED [None]
